FAERS Safety Report 13145637 (Version 17)
Quarter: 2020Q2

REPORT INFORMATION
  Report Type: Report from Study
  Country: US (occurrence: US)
  Receive Date: 20170124
  Receipt Date: 20200422
  Transmission Date: 20200713
  Serious: Yes (Hospitalization, Other)
  Sender: FDA-Public Use
  Company Number: US-ACTELION-A-US2016-133901

PATIENT
  Age: 41 Year
  Sex: Female
  Weight: 63.49 kg

DRUGS (11)
  1. UPTRAVI [Suspect]
     Active Substance: SELEXIPAG
     Dosage: UNK
     Route: 048
     Dates: start: 20160303
  2. SILDENAFIL. [Concomitant]
     Active Substance: SILDENAFIL
  3. OXYGEN. [Concomitant]
     Active Substance: OXYGEN
     Dosage: 5 L, UNK
  4. ADEMPAS [Concomitant]
     Active Substance: RIOCIGUAT
     Dosage: 1.5 MG, UNK
  5. OPSUMIT [Suspect]
     Active Substance: MACITENTAN
     Indication: PULMONARY ARTERIAL HYPERTENSION
     Dosage: 10 MG, QD
     Route: 048
     Dates: start: 20151018
  6. OPSUMIT [Suspect]
     Active Substance: MACITENTAN
     Dosage: UNK
     Route: 048
  7. UPTRAVI [Suspect]
     Active Substance: SELEXIPAG
     Indication: PULMONARY ARTERIAL HYPERTENSION
     Dosage: 1000 MCG, BID
     Route: 048
     Dates: start: 20161121
  8. UPTRAVI [Suspect]
     Active Substance: SELEXIPAG
     Dosage: 600 MCG, BID
     Route: 048
     Dates: start: 20160303, end: 20161121
  9. NYSTATIN. [Concomitant]
     Active Substance: NYSTATIN
     Dosage: UNK
     Dates: start: 20170224
  10. PREDNISONE. [Concomitant]
     Active Substance: PREDNISONE
     Dosage: UNK
     Dates: start: 20170224
  11. OPSUMIT [Suspect]
     Active Substance: MACITENTAN
     Dosage: 10 MG, QD
     Route: 048

REACTIONS (28)
  - Nasal congestion [Recovered/Resolved]
  - Respiratory failure [Recovered/Resolved]
  - Dyspnoea [Recovered/Resolved with Sequelae]
  - Pyrexia [Unknown]
  - Reproductive tract disorder [Unknown]
  - Hypoxia [Recovered/Resolved with Sequelae]
  - Upper respiratory tract infection [Recovered/Resolved]
  - Oedema peripheral [Unknown]
  - Oxygen therapy [Unknown]
  - Fatigue [Unknown]
  - Cough [Recovered/Resolved]
  - Condition aggravated [Recovered/Resolved]
  - Chest pain [Unknown]
  - Diarrhoea [Unknown]
  - Pain [Unknown]
  - Malaise [Unknown]
  - Pneumonia viral [Recovered/Resolved with Sequelae]
  - Nasopharyngitis [Recovered/Resolved]
  - Rhinovirus infection [Recovered/Resolved]
  - Palpitations [Unknown]
  - Oedema [Unknown]
  - Viral infection [Not Recovered/Not Resolved]
  - Pneumonia [Unknown]
  - Oxygen saturation decreased [Recovered/Resolved]
  - Headache [Unknown]
  - Blood pressure abnormal [Unknown]
  - Infection [Unknown]
  - Myalgia [Unknown]

NARRATIVE: CASE EVENT DATE: 20151018
